FAERS Safety Report 4554540-5 (Version None)
Quarter: 2005Q1

REPORT INFORMATION
  Report Type: 
  Country: None (occurrence: None)
  Receive Date: 20041227
  Receipt Date: 20041123
  Transmission Date: 20050727
  Serious: No
  Sender: FDA-Public Use
  Company Number: SP00375

PATIENT
  Age: 60 Year
  Sex: Male
  Weight: 113.3993 kg

DRUGS (7)
  1. RIFAXIMIN (TABLETS) [Suspect]
     Indication: HEPATIC ENCEPHALOPATHY
     Dosage: 400MG/BID, ORAL
     Route: 048
     Dates: start: 20041122
  2. PRILOSEC [Concomitant]
  3. CARAFATE [Concomitant]
  4. XANAX [Concomitant]
  5. NEURONTIN [Concomitant]
  6. LASIX [Concomitant]
  7. ATENOLOL [Concomitant]

REACTIONS (3)
  - FATIGUE [None]
  - FEELING ABNORMAL [None]
  - SOMNOLENCE [None]
